FAERS Safety Report 6176660-4 (Version None)
Quarter: 2009Q2

REPORT INFORMATION
  Report Type: 
  Country: None (occurrence: None)
  Receive Date: 20090501
  Receipt Date: 20081106
  Transmission Date: 20091009
  Serious: Yes (Hospitalization)
  Sender: FDA-Public Use
  Company Number: US-ALEXION-A200800316

PATIENT

DRUGS (12)
  1. SOLIRIS [Suspect]
     Indication: PAROXYSMAL NOCTURNAL HAEMOGLOBINURIA
     Dosage: 600 MG, QW
     Route: 042
     Dates: start: 20080128, end: 20080218
  2. SOLIRIS [Suspect]
     Dosage: 900 MG, Q2W
     Route: 042
     Dates: start: 20080225, end: 20080728
  3. SOLIRIS [Suspect]
     Dosage: 900 MG, SINGLE
     Route: 042
     Dates: start: 20080818, end: 20080818
  4. SOLIRIS [Suspect]
     Dosage: 900 MG, Q2W
     Route: 042
     Dates: start: 20080919
  5. ASPIRIN [Concomitant]
  6. ARIXTRA [Concomitant]
  7. COUMADIN [Concomitant]
  8. PREDNISONE [Concomitant]
  9. TOPROL-XL [Concomitant]
  10. HYDREA [Concomitant]
  11. FOLIC ACID [Concomitant]
  12. NEXIUM [Concomitant]

REACTIONS (1)
  - PYREXIA [None]
